FAERS Safety Report 9031600 (Version 1)
Quarter: 2013Q1

REPORT INFORMATION
  Report Type: Spontaneous
  Country: FR (occurrence: FR)
  Receive Date: 20130124
  Receipt Date: 20130124
  Transmission Date: 20140127
  Serious: Yes (Hospitalization)
  Sender: FDA-Public Use
  Company Number: FR-ROCHE-1182282

PATIENT
  Sex: Male

DRUGS (15)
  1. VALIUM [Suspect]
     Indication: PRODUCT USED FOR UNKNOWN INDICATION
     Route: 048
     Dates: start: 20120926
  2. VALIUM [Suspect]
     Route: 065
     Dates: start: 20120927, end: 20121001
  3. ACTISKENAN [Suspect]
     Indication: PRODUCT USED FOR UNKNOWN INDICATION
     Dosage: 30 MG AT 30 MG
     Route: 048
     Dates: start: 20120926
  4. ACTISKENAN [Suspect]
     Route: 065
     Dates: start: 20120927, end: 20120930
  5. ACTISKENAN [Suspect]
     Dosage: 5 MG AT 10 MG
     Route: 065
     Dates: start: 20120926
  6. ACTISKENAN [Suspect]
     Route: 065
     Dates: start: 20120927
  7. ACTISKENAN [Suspect]
     Route: 065
     Dates: start: 20120929
  8. ACTISKENAN [Suspect]
     Route: 065
     Dates: start: 20120930
  9. ACTISKENAN [Suspect]
     Route: 065
     Dates: start: 20121001
  10. LESCOL [Concomitant]
  11. VERAPAMIL [Concomitant]
  12. KARDEGIC [Concomitant]
  13. DEROXAT [Concomitant]
  14. MIANSERINE [Concomitant]
  15. OMEPRAZOLE [Concomitant]

REACTIONS (2)
  - Somnolence [Recovered/Resolved]
  - Bradypnoea [Recovered/Resolved]
